FAERS Safety Report 12347149 (Version 3)
Quarter: 2016Q2

REPORT INFORMATION
  Report Type: Spontaneous
  Country: US (occurrence: US)
  Receive Date: 20160509
  Receipt Date: 20160628
  Transmission Date: 20160815
  Serious: Yes (Death, Hospitalization)
  Sender: FDA-Public Use
  Company Number: US-CTI_01907_2016

PATIENT
  Sex: Female

DRUGS (6)
  1. SOD CHL [Concomitant]
     Dosage: DF
  2. BETHKIS [Suspect]
     Active Substance: TOBRAMYCIN
     Indication: CYSTIC FIBROSIS
     Route: 055
     Dates: start: 20160320
  3. ALBUTEROL. [Concomitant]
     Active Substance: ALBUTEROL
     Dosage: DF
  4. AQUADEKS [Concomitant]
     Active Substance: MINERALS\VITAMINS
     Dosage: DF
  5. PULMOZYME [Concomitant]
     Active Substance: DORNASE ALFA
     Dosage: DF
  6. ADVAIR HFA [Concomitant]
     Active Substance: FLUTICASONE PROPIONATE\SALMETEROL XINAFOATE
     Dosage: DF

REACTIONS (1)
  - Ill-defined disorder [Fatal]
